FAERS Safety Report 18686970 (Version 3)
Quarter: 2021Q1

REPORT INFORMATION
  Report Type: Spontaneous
  Country: NO (occurrence: NO)
  Receive Date: 20201231
  Receipt Date: 20210129
  Transmission Date: 20210419
  Serious: Yes (Other)
  Sender: FDA-Public Use
  Company Number: NO-ORION CORPORATION ORION PHARMA-20_00012370

PATIENT
  Age: 65 Year
  Sex: Female
  Weight: 54 kg

DRUGS (2)
  1. SINEMET [Suspect]
     Active Substance: CARBIDOPA\LEVODOPA
     Indication: PARKINSON^S DISEASE
     Dosage: STRENGTH: 25/100 MG; 1 TABLET TOGETHER WITH 1 TABLET OF COMTESS 8 TIMES EACH DAY
     Route: 048
     Dates: start: 20001001
  2. COMTESS [Suspect]
     Active Substance: ENTACAPONE
     Indication: PARKINSON^S DISEASE
     Dosage: 1 TABLET TOGETHER WITH 1 TABLET SINIMET 8 TIMES EACH DAY
     Route: 065
     Dates: start: 20001001

REACTIONS (6)
  - Dysstasia [Unknown]
  - Subarachnoid haemorrhage [Unknown]
  - Dizziness [Not Recovered/Not Resolved]
  - Gait disturbance [Unknown]
  - Fall [Unknown]
  - Skull fracture [Unknown]

NARRATIVE: CASE EVENT DATE: 20180801
